FAERS Safety Report 20344719 (Version 3)
Quarter: 2022Q2

REPORT INFORMATION
  Report Type: Report from Study
  Country: US (occurrence: US)
  Receive Date: 20220118
  Receipt Date: 20220620
  Transmission Date: 20220720
  Serious: Yes (Hospitalization, Other)
  Sender: FDA-Public Use
  Company Number: US-TAKEDA-2022TUS001513

PATIENT
  Sex: Male

DRUGS (12)
  1. TEDUGLUTIDE [Suspect]
     Active Substance: TEDUGLUTIDE
     Indication: Short-bowel syndrome
     Dosage: 0.351 MILLILITER
     Route: 058
     Dates: start: 202109
  2. TEDUGLUTIDE [Suspect]
     Active Substance: TEDUGLUTIDE
     Indication: Short-bowel syndrome
     Dosage: 0.351 MILLILITER
     Route: 058
     Dates: start: 202109
  3. TEDUGLUTIDE [Suspect]
     Active Substance: TEDUGLUTIDE
     Indication: Short-bowel syndrome
     Dosage: 0.351 MILLILITER
     Route: 058
     Dates: start: 202109
  4. TEDUGLUTIDE [Suspect]
     Active Substance: TEDUGLUTIDE
     Indication: Short-bowel syndrome
     Dosage: 0.351 MILLILITER
     Route: 058
     Dates: start: 202109
  5. TEDUGLUTIDE [Suspect]
     Active Substance: TEDUGLUTIDE
     Dosage: 0.351 MILLILITER, QD
     Route: 058
     Dates: start: 20210907
  6. TEDUGLUTIDE [Suspect]
     Active Substance: TEDUGLUTIDE
     Dosage: 0.351 MILLILITER, QD
     Route: 058
     Dates: start: 20210907
  7. TEDUGLUTIDE [Suspect]
     Active Substance: TEDUGLUTIDE
     Dosage: 0.351 MILLILITER, QD
     Route: 058
     Dates: start: 20210907
  8. TEDUGLUTIDE [Suspect]
     Active Substance: TEDUGLUTIDE
     Dosage: 0.351 MILLILITER, QD
     Route: 058
     Dates: start: 20210907
  9. TEDUGLUTIDE [Suspect]
     Active Substance: TEDUGLUTIDE
     Dosage: 0.351 MILLILITER, QD
     Route: 058
     Dates: start: 20210908
  10. TEDUGLUTIDE [Suspect]
     Active Substance: TEDUGLUTIDE
     Dosage: 0.351 MILLILITER, QD
     Route: 058
     Dates: start: 20210908
  11. TEDUGLUTIDE [Suspect]
     Active Substance: TEDUGLUTIDE
     Dosage: 0.351 MILLILITER, QD
     Route: 058
     Dates: start: 20210908
  12. TEDUGLUTIDE [Suspect]
     Active Substance: TEDUGLUTIDE
     Dosage: 0.351 MILLILITER, QD
     Route: 058
     Dates: start: 20210908

REACTIONS (9)
  - Ileostomy [Unknown]
  - Renal impairment [Unknown]
  - Dehydration [Unknown]
  - Skin ulcer [Unknown]
  - Weight decreased [Unknown]
  - Injection site mass [Unknown]
  - Amnesia [Unknown]
  - Road traffic accident [Unknown]
  - Product dose omission issue [Unknown]
